FAERS Safety Report 24590543 (Version 2)
Quarter: 2025Q1

REPORT INFORMATION
  Report Type: Spontaneous
  Country: DE (occurrence: DE)
  Receive Date: 20241107
  Receipt Date: 20250104
  Transmission Date: 20250409
  Serious: Yes (Other)
  Sender: CELLTRION
  Company Number: DE-AstraZeneca-2024A102224

PATIENT

DRUGS (6)
  1. BEVACIZUMAB [Suspect]
     Active Substance: BEVACIZUMAB
     Indication: Product used for unknown indication
  2. ATEZOLIZUMAB [Suspect]
     Active Substance: ATEZOLIZUMAB
     Indication: Product used for unknown indication
  3. ATEZOLIZUMAB [Suspect]
     Active Substance: ATEZOLIZUMAB
  4. DURVALUMAB\TREMELIMUMAB [Suspect]
     Active Substance: DURVALUMAB\TREMELIMUMAB
     Indication: Product used for unknown indication
  5. MITOMYCIN C [Suspect]
     Active Substance: MITOMYCIN
     Indication: Product used for unknown indication
  6. LENVATINIB MESYLATE [Suspect]
     Active Substance: LENVATINIB MESYLATE
     Indication: Product used for unknown indication

REACTIONS (6)
  - Disease progression [Unknown]
  - Palmar-plantar erythrodysaesthesia syndrome [Unknown]
  - Gastrointestinal disorder [Unknown]
  - Wound [Unknown]
  - Impaired healing [Unknown]
  - Off label use [Unknown]
